FAERS Safety Report 4347867-3 (Version None)
Quarter: 2004Q2

REPORT INFORMATION
  Report Type: 
  Country: None (occurrence: None)
  Receive Date: 20040422
  Receipt Date: 20040412
  Transmission Date: 20050107
  Serious: Yes (Hospitalization)
  Sender: FDA-Public Use
  Company Number: VIS10152.2001

PATIENT
  Age: 51 Year
  Sex: Female
  Weight: 80.7403 kg

DRUGS (5)
  1. VISICOL [Suspect]
     Indication: COLONOSCOPY
     Dosage: 42 G ONCE PO
     Route: 048
     Dates: start: 20031028, end: 20031029
  2. HYDRODIURIL [Suspect]
     Indication: HYPERTENSION
     Dosage: 25 MG Q4HR PO
     Route: 048
  3. EFFEXOR [Concomitant]
  4. ATIVAN [Concomitant]
  5. PROTONIX [Concomitant]

REACTIONS (28)
  - ASTHENIA [None]
  - BLOOD CREATININE INCREASED [None]
  - BLOOD GLUCOSE INCREASED [None]
  - BODY TEMPERATURE INCREASED [None]
  - CHEST PAIN [None]
  - DEHYDRATION [None]
  - DIABETES MELLITUS [None]
  - DIZZINESS [None]
  - DYSPNOEA [None]
  - ELECTROLYTE IMBALANCE [None]
  - FATIGUE [None]
  - HAEMOGLOBIN ABNORMAL [None]
  - INFREQUENT BOWEL MOVEMENTS [None]
  - MEDICATION ERROR [None]
  - NAUSEA [None]
  - OXYGEN SATURATION DECREASED [None]
  - PALPITATIONS [None]
  - PARAESTHESIA [None]
  - POLLAKIURIA [None]
  - POLYDIPSIA [None]
  - RASH [None]
  - RHINORRHOEA [None]
  - SALIVARY HYPERSECRETION [None]
  - SENSATION OF HEAVINESS [None]
  - STRESS SYMPTOMS [None]
  - THIRST [None]
  - URINE OUTPUT DECREASED [None]
  - VOMITING [None]
